FAERS Safety Report 15682900 (Version 1)
Quarter: 2018Q4

REPORT INFORMATION
  Report Type: Spontaneous
  Country: GB (occurrence: GB)
  Receive Date: 20181203
  Receipt Date: 20181203
  Transmission Date: 20190205
  Serious: Yes (Death)
  Sender: FDA-Public Use
  Company Number: GB-BAXTER-2018BAX029185

PATIENT
  Sex: Male

DRUGS (2)
  1. CITRATE [Suspect]
     Active Substance: CITRIC ACID MONOHYDRATE
     Indication: RENAL REPLACEMENT THERAPY
     Dosage: ANTICOAGULATION
     Route: 010
  2. PHOXILIUM [Suspect]
     Active Substance: CALCIUM CL\MAGNESIUM CL\POTASSIUM CL\SODIUM BICAR\SODIUM CL\SODIUM PHOSPHATE,DIB
     Indication: CONTINUOUS HAEMODIAFILTRATION
     Dosage: AS PBP, DIALYSATE AND REPLACEMENT FOR CVVHDF (CRRT)
     Route: 010

REACTIONS (1)
  - Chronic hepatic failure [Fatal]
